FAERS Safety Report 21311249 (Version 1)
Quarter: 2022Q3

REPORT INFORMATION
  Report Type: Spontaneous
  Country: US (occurrence: None)
  Receive Date: 20220909
  Receipt Date: 20220909
  Transmission Date: 20221026
  Serious: No
  Sender: FDA-Public Use
  Company Number: US-FARMAPROD-202202-0278

PATIENT
  Sex: Female

DRUGS (3)
  1. OXERVATE [Suspect]
     Active Substance: CENEGERMIN-BKBJ
     Indication: Neurotrophic keratopathy
     Route: 047
     Dates: start: 20220105
  2. RESTASIS [Concomitant]
     Active Substance: CYCLOSPORINE
  3. REWETTING DROPS [Concomitant]

REACTIONS (1)
  - Eye pain [Not Recovered/Not Resolved]
